FAERS Safety Report 4664183-0 (Version None)
Quarter: 2005Q2

REPORT INFORMATION
  Report Type: 
  Country: None (occurrence: None)
  Receive Date: 20050516
  Receipt Date: 20050516
  Transmission Date: 20051028
  Serious: Yes (Hospitalization)
  Sender: FDA-Public Use
  Company Number: None

PATIENT
  Age: 40 Year
  Sex: Female
  Weight: 72.5755 kg

DRUGS (2)
  1. TACROLIMUS  STRONGEST AVAILABLE [Suspect]
     Indication: ECZEMA
     Dosage: DAILY + CUTANEOUS
     Route: 003
     Dates: start: 19991001, end: 20040901
  2. PIMELIMUS STRONGEST AVAILABLE [Suspect]
     Dosage: DAILY +  CUTANEOUS
     Route: 003
     Dates: start: 20020301, end: 20041001

REACTIONS (3)
  - BASAL CELL CARCINOMA [None]
  - IMMUNE SYSTEM DISORDER [None]
  - STRESS [None]
